FAERS Safety Report 25750783 (Version 1)
Quarter: 2025Q3

REPORT INFORMATION
  Report Type: Report from Study
  Country: US (occurrence: US)
  Receive Date: 20250902
  Receipt Date: 20250902
  Transmission Date: 20251021
  Serious: No
  Sender: ACADIA PHARMACEUTICALS
  Company Number: US-ACADIA PHARMACEUTICALS INC.-ACA-2025-PIM-009725

PATIENT
  Sex: Male

DRUGS (18)
  1. NUPLAZID [Suspect]
     Active Substance: PIMAVANSERIN TARTRATE
     Indication: Parkinson^s disease psychosis
     Dosage: 34 MILLIGRAM, QD
     Route: 048
     Dates: start: 20250620, end: 20250820
  2. APAP [Concomitant]
     Active Substance: ACETAMINOPHEN
  3. ALLOPURINOL [Concomitant]
     Active Substance: ALLOPURINOL
  4. AMANTADINE [Concomitant]
     Active Substance: AMANTADINE
  5. ATENOLOL [Concomitant]
     Active Substance: ATENOLOL
  6. ATROPINE [Concomitant]
     Active Substance: ATROPINE
     Route: 060
  7. AZILECT [RASAGILINE] [Concomitant]
  8. CARBIDOPA\LEVODOPA [Concomitant]
     Active Substance: CARBIDOPA\LEVODOPA
  9. ENTACAPONE [Concomitant]
     Active Substance: ENTACAPONE
  10. EZETIMIBE [Concomitant]
     Active Substance: EZETIMIBE
  11. FLUTICASONE [Concomitant]
     Active Substance: FLUTICASONE
     Route: 045
  12. GLIPIZIDE [Concomitant]
     Active Substance: GLIPIZIDE
  13. LORAZEPAM [Concomitant]
     Active Substance: LORAZEPAM
  14. NOVOLOG [Concomitant]
     Active Substance: INSULIN ASPART
  15. OMEPRAZOLE [Concomitant]
     Active Substance: OMEPRAZOLE
  16. ONDANSETRON [Concomitant]
     Active Substance: ONDANSETRON
  17. POLYETHYLENE GLYCOL 3350 [Concomitant]
     Active Substance: POLYETHYLENE GLYCOL 3350
  18. ROPINIROLE [Concomitant]
     Active Substance: ROPINIROLE

REACTIONS (1)
  - Somnolence [Recovered/Resolved]
